FAERS Safety Report 4322528-5 (Version None)
Quarter: 2004Q1

REPORT INFORMATION
  Report Type: 
  Country: None (occurrence: None)
  Receive Date: 20040324
  Receipt Date: 20040205
  Transmission Date: 20041129
  Serious: Yes (Life-Threatening, Hospitalization)
  Sender: FDA-Public Use
  Company Number: 200410916US

PATIENT
  Sex: Male
  Weight: 91.4 kg

DRUGS (7)
  1. LANTUS [Suspect]
     Indication: DIABETES MELLITUS INSULIN-DEPENDENT
     Dosage: DOSE UNIT: UNITS
     Route: 058
     Dates: start: 20030501
  2. HUMALOG [Suspect]
     Indication: DIABETES MELLITUS INSULIN-DEPENDENT
     Dosage: DOSE: SLIDING SCALE
  3. ASPIRIN [Concomitant]
     Dates: start: 20031215
  4. RAMIPRIL [Concomitant]
     Dates: start: 20031215
  5. SIMVASTATIN [Concomitant]
     Dates: start: 20031215
  6. ASPIRIN [Concomitant]
     Dates: start: 20031215
  7. SSRI [Concomitant]
     Indication: ANXIETY
     Dates: start: 20031208, end: 20040126

REACTIONS (12)
  - CARDIAC ARREST [None]
  - CONVULSION [None]
  - DIABETES MELLITUS INADEQUATE CONTROL [None]
  - DYSPNOEA [None]
  - HYPERHIDROSIS [None]
  - INJECTION SITE HAEMORRHAGE [None]
  - LOSS OF CONSCIOUSNESS [None]
  - MEDICATION ERROR [None]
  - MEMORY IMPAIRMENT [None]
  - RESTLESSNESS [None]
  - SUICIDE ATTEMPT [None]
  - TONGUE BITING [None]
